FAERS Safety Report 6829883-2 (Version None)
Quarter: 2010Q3

REPORT INFORMATION
  Report Type: 
  Country: None (occurrence: None)
  Receive Date: 20100711
  Receipt Date: 20100707
  Transmission Date: 20110219
  Serious: Yes (Other)
  Sender: FDA-Public Use
  Company Number: US-ALLERGAN-1007583US

PATIENT
  Age: 49 Year
  Sex: Male

DRUGS (1)
  1. OZURDEX [Suspect]
     Indication: MACULAR OEDEMA
     Dosage: UNK
     Route: 031
     Dates: start: 20100526, end: 20100526

REACTIONS (3)
  - CORNEAL OEDEMA [None]
  - DEVICE DISLOCATION [None]
  - VISUAL ACUITY REDUCED [None]
